FAERS Safety Report 20127129 (Version 1)
Quarter: 2021Q4

REPORT INFORMATION
  Report Type: Spontaneous
  Country: US (occurrence: US)
  Receive Date: 20211129
  Receipt Date: 20211129
  Transmission Date: 20220303
  Serious: No
  Sender: FDA-Public Use
  Company Number: US-SA-SAC20211125000783

PATIENT
  Age: 47 Year
  Sex: Male

DRUGS (5)
  1. DUPIXENT [Suspect]
     Active Substance: DUPILUMAB
     Indication: Dermatitis atopic
     Dosage: 300 MG, QOW
     Route: 058
     Dates: start: 20210817
  2. INDOMETHACIN [Concomitant]
     Active Substance: INDOMETHACIN
  3. ITRACONAZOLE [Concomitant]
     Active Substance: ITRACONAZOLE
  4. BENZOYL METRONIDAZOLE [Concomitant]
  5. TACROLIMUS [Concomitant]
     Active Substance: TACROLIMUS

REACTIONS (2)
  - Dry skin [Unknown]
  - Dandruff [Unknown]
